FAERS Safety Report 14793763 (Version 1)
Quarter: 2018Q2

REPORT INFORMATION
  Report Type: Spontaneous
  Country: US (occurrence: US)
  Receive Date: 20180423
  Receipt Date: 20180423
  Transmission Date: 20180711
  Serious: Yes (Other)
  Sender: FDA-Public Use
  Company Number: US-GLAXOSMITHKLINE-US2018068914

PATIENT
  Age: 64 Year
  Sex: Female

DRUGS (18)
  1. BREO ELLIPTA [Suspect]
     Active Substance: FLUTICASONE FUROATE\VILANTEROL TRIFENATATE
     Indication: CHRONIC OBSTRUCTIVE PULMONARY DISEASE
     Dosage: 1 PUFF(S), 1D
     Route: 055
     Dates: start: 201802, end: 201803
  2. HYOSCYAMINE. [Concomitant]
     Active Substance: HYOSCYAMINE
  3. REQUIP [Concomitant]
     Active Substance: ROPINIROLE HYDROCHLORIDE
  4. TOPAMAX [Concomitant]
     Active Substance: TOPIRAMATE
  5. LIDOCAINE TOPICAL [Concomitant]
     Active Substance: LIDOCAINE
  6. NORVASC [Concomitant]
     Active Substance: AMLODIPINE BESYLATE
  7. PROPRANOLOL [Concomitant]
     Active Substance: PROPRANOLOL HYDROCHLORIDE
  8. AMITRIPTYLINE [Concomitant]
     Active Substance: AMITRIPTYLINE
  9. CROMOLYN OPHTHALMIC [Concomitant]
  10. OXYCODONE [Concomitant]
     Active Substance: OXYCODONE
  11. PERCOCET [Concomitant]
     Active Substance: ACETAMINOPHEN\OXYCODONE HYDROCHLORIDE
  12. ZOLOFT [Concomitant]
     Active Substance: SERTRALINE HYDROCHLORIDE
  13. NARATRIPTAN [Concomitant]
     Active Substance: NARATRIPTAN HYDROCHLORIDE
  14. PROMETHAZINE [Concomitant]
     Active Substance: PROMETHAZINE\PROMETHAZINE HYDROCHLORIDE
  15. BREO ELLIPTA [Suspect]
     Active Substance: FLUTICASONE FUROATE\VILANTEROL TRIFENATATE
     Dosage: UNK
  16. KLONOPIN [Concomitant]
     Active Substance: CLONAZEPAM
  17. FIBER SUPPLEMENT [Concomitant]
     Active Substance: DIETARY SUPPLEMENT
  18. ZOFRAN [Concomitant]
     Active Substance: ONDANSETRON HYDROCHLORIDE

REACTIONS (3)
  - Weight increased [Unknown]
  - Waist circumference increased [Unknown]
  - Chronic kidney disease [Unknown]

NARRATIVE: CASE EVENT DATE: 201803
